FAERS Safety Report 4477099-X (Version None)
Quarter: 2004Q4

REPORT INFORMATION
  Report Type: 
  Country: None (occurrence: None)
  Receive Date: 20041018
  Receipt Date: 20041008
  Transmission Date: 20050328
  Serious: Yes (Hospitalization)
  Sender: FDA-Public Use
  Company Number: 200420051GDDC

PATIENT
  Age: 41 Year
  Sex: Female

DRUGS (1)
  1. CLOMID [Suspect]
     Dosage: DOSE: 50 MG FOR 5 DAYS (3 CYCLES)
     Route: 048

REACTIONS (1)
  - DEEP VEIN THROMBOSIS [None]
